FAERS Safety Report 6376556-9 (Version None)
Quarter: 2009Q3

REPORT INFORMATION
  Report Type: 
  Country: None (occurrence: None)
  Receive Date: 20090925
  Receipt Date: 20090915
  Transmission Date: 20100115
  Serious: Yes (Other)
  Sender: FDA-Public Use
  Company Number: US-PFIZER INC-2009272558

PATIENT
  Sex: Female
  Weight: 64.399 kg

DRUGS (2)
  1. XANAX [Suspect]
     Indication: ANXIETY
     Dosage: FREQUENCY: 2X/DAY,
     Route: 048
     Dates: start: 20090801, end: 20090901
  2. ZOLOFT [Interacting]
     Indication: ANXIETY
     Route: 048
     Dates: start: 20090801, end: 20090901

REACTIONS (2)
  - DRUG INTERACTION [None]
  - HALLUCINATION, AUDITORY [None]
